FAERS Safety Report 5307872-7 (Version None)
Quarter: 2007Q2

REPORT INFORMATION
  Report Type: 
  Country: None (occurrence: None)
  Receive Date: 20070425
  Receipt Date: 20070312
  Transmission Date: 20071010
  Serious: Yes (Hospitalization)
  Sender: FDA-Public Use
  Company Number: US-SANOFI-SYNTHELABO-A03200702264

PATIENT
  Sex: Female

DRUGS (2)
  1. ZOLOFT [Concomitant]
     Dosage: UNK
     Route: 065
  2. AMBIEN [Suspect]
     Indication: INSOMNIA
     Route: 048
     Dates: start: 20040101, end: 20050301

REACTIONS (6)
  - ACCIDENTAL OVERDOSE [None]
  - AMNESIA [None]
  - COMA [None]
  - EATING DISORDER [None]
  - SLEEP TALKING [None]
  - SLEEP WALKING [None]
